FAERS Safety Report 9294350 (Version 1)
Quarter: 2013Q1

REPORT INFORMATION
  Report Type: Spontaneous
  Country: US (occurrence: None)
  Receive Date: 20121227
  Receipt Date: 20121227
  Transmission Date: 20140127
  Serious: Yes (Hospitalization)
  Sender: FDA-Public Use
  Company Number: PHEH2011US011496

PATIENT
  Age: 8 Year
  Sex: Male
  Weight: 30.9 kg

DRUGS (6)
  1. EXJADE [Suspect]
     Indication: SICKLE CELL ANAEMIA
     Route: 048
     Dates: start: 20110430
  2. PEN-VEE-K (PHENOXYMETHYLPENICILLIN POTASSIUM) [Concomitant]
  3. FOLIC ACID (FOLIC ACID) [Concomitant]
  4. QVAR (BECLOMETASONE DIPROPIONATE) [Concomitant]
  5. PROAIR HFA (ALBUTEROL SULFATE) INHALATION AEROSOL (SALBUTAMOL SULFATE) [Concomitant]
  6. ALLERGY MEDICATION (NO INGREDIENTS/SUBSTANCES) [Concomitant]

REACTIONS (1)
  - Sickle cell anaemia with crisis [None]
